FAERS Safety Report 5898045-8 (Version None)
Quarter: 2008Q3

REPORT INFORMATION
  Report Type: 
  Country: None (occurrence: None)
  Receive Date: 20080925
  Receipt Date: 20080917
  Transmission Date: 20090109
  Serious: Yes (Other)
  Sender: FDA-Public Use
  Company Number: US-ROCHE-515289

PATIENT
  Sex: Male

DRUGS (4)
  1. PEG-INTERFERON A-2A (RO 25-8310) [Suspect]
     Route: 065
     Dates: start: 20050616, end: 20060201
  2. PEG-INTERFERON A-2A (RO 25-8310) [Suspect]
     Dosage: PEGASYS MONOTHERAPY
     Route: 065
     Dates: start: 20060201, end: 20060504
  3. RIBAVIRIN [Suspect]
     Route: 065
     Dates: start: 20050616, end: 20060201
  4. RIBAVIRIN [Suspect]
     Route: 065
     Dates: end: 20060504

REACTIONS (2)
  - HEPATIC CIRRHOSIS [None]
  - HEPATIC NEOPLASM MALIGNANT [None]
